FAERS Safety Report 11114956 (Version 1)
Quarter: 2015Q2

REPORT INFORMATION
  Report Type: Spontaneous
  Country: PL (occurrence: None)
  Receive Date: 20150513
  Receipt Date: 20150513
  Transmission Date: 20150821
  Serious: No
  Sender: FDA-Public Use
  Company Number: PL-2015-1935

PATIENT
  Age: 55 Year
  Sex: Female
  Weight: 76 kg

DRUGS (2)
  1. CISPLATIN (CISPLATIN) [Suspect]
     Active Substance: CISPLATIN
     Indication: LUNG NEOPLASM MALIGNANT
     Route: 042
     Dates: start: 20150205, end: 20150205
  2. NAVELBINE [Suspect]
     Active Substance: VINORELBINE TARTRATE
     Route: 042

REACTIONS (4)
  - Neutropenia [None]
  - Renal failure [None]
  - Overdose [None]
  - Leukopenia [None]

NARRATIVE: CASE EVENT DATE: 20150205
